FAERS Safety Report 11458939 (Version 1)
Quarter: 2015Q3

REPORT INFORMATION
  Report Type: Spontaneous
  Country: US (occurrence: None)
  Receive Date: 20150903
  Receipt Date: 20150903
  Transmission Date: 20151125
  Serious: No
  Sender: FDA-Public Use
  Company Number: None

PATIENT
  Age: 51 Year
  Sex: Male
  Weight: 91.3 kg

DRUGS (3)
  1. CISPLATIN. [Suspect]
     Active Substance: CISPLATIN
     Indication: NEUTROPHIL COUNT DECREASED
     Dates: start: 20150603
  2. CISPLATIN. [Suspect]
     Active Substance: CISPLATIN
     Indication: WHITE BLOOD CELL COUNT DECREASED
     Dates: start: 20150603
  3. ETOPOSIDE (VP-16) [Suspect]
     Active Substance: ETOPOSIDE
     Dates: start: 20150605

REACTIONS (3)
  - Neutrophil count decreased [None]
  - Pulmonary embolism [None]
  - White blood cell count decreased [None]

NARRATIVE: CASE EVENT DATE: 20150617
